FAERS Safety Report 6069066-X (Version None)
Quarter: 2009Q1

REPORT INFORMATION
  Report Type: 
  Country: None (occurrence: None)
  Receive Date: 20090203
  Receipt Date: 20090126
  Transmission Date: 20090719
  Serious: Yes (Other)
  Sender: FDA-Public Use
  Company Number: GXKR2009HU01152

PATIENT
  Age: 33 Year
  Sex: Female
  Weight: 39 kg

DRUGS (16)
  1. AZATHIOPRINE [Suspect]
     Indication: GLOMERULONEPHRITIS MEMBRANOUS
     Dosage: 100 MG, UNK, ORAL
     Route: 048
  2. METHYLPREDNISOLONE 4MG TAB [Suspect]
     Indication: GLOMERULONEPHRITIS MEMBRANOUS
     Dosage: 16 MG, UNK, ORAL 250 MG, UNK, INTRAVENOUS, 32 MG, UNK, ORAL 64 MG, UNK, ORAL
     Route: 048
  3. CYTOXAN [Concomitant]
  4. METHYLDOPA [Concomitant]
  5. FUROSEMIDE (FUROSEMIDE) [Concomitant]
  6. CLOPAMINE (CLOPAMIDE) [Concomitant]
  7. FRESH FROZEN PLASMA [Concomitant]
  8. ALBUMIN NOS (ALBUMIN NOS) [Concomitant]
  9. NIFEDIPINE [Concomitant]
  10. RANITIDINE [Concomitant]
  11. MAGNESIUM SULFATE [Concomitant]
  12. NADROPARIN (NADROPARIN) [Concomitant]
  13. ENALAPRIL MALEATE [Concomitant]
  14. ERYTHROMYCIN [Concomitant]
  15. AMOXICILLIN [Concomitant]
  16. CLAVULANIC ACID (CLAVULANIC ACID) [Concomitant]

REACTIONS (10)
  - BLOOD PRESSURE FLUCTUATION [None]
  - CAESAREAN SECTION [None]
  - DRUG EXPOSURE DURING PREGNANCY [None]
  - GENERALISED OEDEMA [None]
  - HAEMODIALYSIS [None]
  - HYPOPROTEINAEMIA [None]
  - NO THERAPEUTIC RESPONSE [None]
  - PREMATURE BABY [None]
  - PROTEIN URINE PRESENT [None]
  - RENAL IMPAIRMENT [None]
